FAERS Safety Report 9304012 (Version 2)
Quarter: 2013Q2

REPORT INFORMATION
  Report Type: Report from Study
  Country: JP (occurrence: JP)
  Receive Date: 20130522
  Receipt Date: 20130530
  Transmission Date: 20140414
  Serious: Yes (Death, Hospitalization)
  Sender: FDA-Public Use
  Company Number: JP-ROCHE-1181213

PATIENT
  Age: 76 Year
  Sex: Male

DRUGS (1)
  1. METHOXY POLYETHYLENE GLYCOL-EPOETIN BETA [Suspect]
     Indication: NEPHROGENIC ANAEMIA
     Route: 058
     Dates: start: 20120918, end: 20121116

REACTIONS (2)
  - Death [Fatal]
  - Calculus ureteric [Recovering/Resolving]
